FAERS Safety Report 11016628 (Version 2)
Quarter: 2015Q2

REPORT INFORMATION
  Report Type: Spontaneous
  Country: US (occurrence: US)
  Receive Date: 20150412
  Receipt Date: 20150525
  Transmission Date: 20150821
  Serious: No
  Sender: FDA-Public Use
  Company Number: US-JNJFOC-20140204173

PATIENT
  Sex: Female

DRUGS (3)
  1. MICRONOR [Suspect]
     Active Substance: NORETHINDRONE
     Indication: COGNITIVE DISORDER
     Route: 048
     Dates: start: 201401
  2. MICRONOR [Suspect]
     Active Substance: NORETHINDRONE
     Indication: COGNITIVE DISORDER
     Route: 048
     Dates: start: 2010, end: 201309
  3. ESTRIOL [Concomitant]
     Active Substance: ESTRIOL
     Route: 065

REACTIONS (2)
  - Drug prescribing error [Unknown]
  - Product use issue [Unknown]
